FAERS Safety Report 20124503 (Version 1)
Quarter: 2021Q4

REPORT INFORMATION
  Report Type: Spontaneous
  Country: US (occurrence: US)
  Receive Date: 20211129
  Receipt Date: 20211129
  Transmission Date: 20220303
  Serious: No
  Sender: FDA-Public Use
  Company Number: US-TEVA-2021-US-1979873

PATIENT
  Sex: Female

DRUGS (1)
  1. ETONOGESTREL AND ETHINYL ESTRADIOL [Suspect]
     Active Substance: ETHINYL ESTRADIOL\ETONOGESTREL
     Dosage: 0.120/0.015 MG-MG
     Dates: start: 202111

REACTIONS (4)
  - Vulvovaginal discomfort [Recovered/Resolved]
  - Product storage error [Unknown]
  - Device physical property issue [Unknown]
  - Device expulsion [Unknown]
